FAERS Safety Report 12198116 (Version 1)
Quarter: 2016Q1

REPORT INFORMATION
  Report Type: Spontaneous
  Country: US (occurrence: None)
  Receive Date: 20160321
  Receipt Date: 20160321
  Transmission Date: 20160526
  Serious: Yes (Other)
  Sender: FDA-Public Use
  Company Number: None

PATIENT
  Age: 60 Year
  Sex: Female
  Weight: 78.02 kg

DRUGS (16)
  1. ESTROGEN CREAM L-THYROXINE [Concomitant]
  2. C^S [Concomitant]
  3. NASAL DECONGESTANT PREMIER VALUE [Suspect]
     Active Substance: OXYMETAZOLINE HYDROCHLORIDE
     Indication: DYSPNOEA
     Dates: start: 20160309, end: 20160309
  4. PROGESTERONE, MICRONIZED [Concomitant]
  5. B^S [Concomitant]
  6. NEXIUM [Concomitant]
     Active Substance: ESOMEPRAZOLE MAGNESIUM
  7. BUDESONIDE ER [Concomitant]
  8. FEXOFENADINE HYDROCHLORIC [Concomitant]
  9. LIALDA [Concomitant]
     Active Substance: MESALAMINE
  10. D^S [Concomitant]
  11. HOMEOPATHIC STUFF [Concomitant]
  12. CAL-MAGS [Concomitant]
  13. E^S [Concomitant]
  14. PROBIOTICS [Concomitant]
     Active Substance: PROBIOTICS NOS
  15. DIGESTIVE ENZYMES [Concomitant]
     Active Substance: UNSPECIFIED INGREDIENT
  16. OMEGA 3/FISH OIL [Concomitant]

REACTIONS (9)
  - Insomnia [None]
  - Sinus headache [None]
  - Nausea [None]
  - Heart rate increased [None]
  - Agitation [None]
  - Oropharyngeal pain [None]
  - Tremor [None]
  - Dyskinesia [None]
  - Dizziness [None]

NARRATIVE: CASE EVENT DATE: 20160319
